FAERS Safety Report 8057964-7 (Version None)
Quarter: 2012Q1

REPORT INFORMATION
  Report Type: 
  Country: None (occurrence: None)
  Receive Date: 20120120
  Receipt Date: 20120113
  Transmission Date: 20120608
  Serious: No
  Sender: FDA-Public Use
  Company Number: US-PFIZER INC-2012012730

PATIENT
  Sex: Male

DRUGS (2)
  1. DILANTIN-125 [Suspect]
     Dosage: 30 MG
  2. DILANTIN-125 [Suspect]
     Dosage: 100 MG

REACTIONS (2)
  - SEDATION [None]
  - SOMNOLENCE [None]
